FAERS Safety Report 9349526 (Version 1)
Quarter: 2013Q2

REPORT INFORMATION
  Report Type: Spontaneous
  Country: IN (occurrence: IN)
  Receive Date: 20130614
  Receipt Date: 20130614
  Transmission Date: 20140414
  Serious: Yes (Death, Hospitalization)
  Sender: FDA-Public Use
  Company Number: IN-ABBOTT-13P-078-1103663-00

PATIENT
  Sex: Female
  Weight: 1.75 kg

DRUGS (1)
  1. SURVANTA INTRATRACHEAL [Suspect]
     Indication: PRODUCT USED FOR UNKNOWN INDICATION

REACTIONS (6)
  - Neonatal respiratory distress syndrome [Fatal]
  - Neonatal hypotension [Fatal]
  - Patent ductus arteriosus [Fatal]
  - Pulmonary haemorrhage [Fatal]
  - Acute respiratory distress syndrome [Fatal]
  - Unevaluable event [Fatal]
